FAERS Safety Report 10174127 (Version 1)
Quarter: 2014Q2

REPORT INFORMATION
  Report Type: Spontaneous
  Country: US (occurrence: None)
  Receive Date: 20140514
  Receipt Date: 20140514
  Transmission Date: 20141212
  Serious: Yes (Other)
  Sender: FDA-Public Use
  Company Number: None

PATIENT
  Age: 53 Year
  Sex: Female
  Weight: 74.84 kg

DRUGS (22)
  1. LEVOFLOXACIN [Suspect]
     Indication: PHARYNGITIS
     Dosage: 10 PILLS
     Route: 048
     Dates: start: 20140416, end: 20140425
  2. LEVOFLOXACIN [Suspect]
     Indication: UPPER RESPIRATORY TRACT INFECTION
     Dosage: 10 PILLS
     Route: 048
     Dates: start: 20140416, end: 20140425
  3. LEVOFLOXACIN [Suspect]
     Indication: PHARYNGITIS
     Dosage: 5 PILLS, ONCE DAILY, TAKEN BY MOUTH
     Route: 048
     Dates: start: 20140328, end: 20140401
  4. LEVOFLOXACIN [Suspect]
     Indication: UPPER RESPIRATORY TRACT INFECTION
     Dosage: 5 PILLS, ONCE DAILY, TAKEN BY MOUTH
     Route: 048
     Dates: start: 20140328, end: 20140401
  5. BYSTOLIC [Concomitant]
  6. PROAIR HFA [Concomitant]
  7. PRAVASTATIN [Concomitant]
  8. FENOFIBRIC ACID [Concomitant]
  9. TRIAMTERENE/HCTZ [Concomitant]
  10. PREMARIN VAG CRM W/AP [Concomitant]
  11. PROMETHAZINE HCL [Concomitant]
  12. GABAPENTIN CAPS [Concomitant]
  13. OMEPRAZOLE CAPS [Concomitant]
  14. AMITRIPTYLINE TABS [Concomitant]
  15. MULTIVITAMIN [Concomitant]
  16. FISH OIL [Concomitant]
  17. 82 MG ASPIRIN [Concomitant]
  18. E [Concomitant]
  19. D2 [Concomitant]
  20. C [Concomitant]
  21. POTASSIUM [Concomitant]
  22. ZINC [Concomitant]

REACTIONS (4)
  - Inflammation [None]
  - Arthropathy [None]
  - Pain [None]
  - Arthritis [None]
